APPROVED DRUG PRODUCT: MOMETASONE FUROATE
Active Ingredient: MOMETASONE FUROATE
Strength: 0.1%
Dosage Form/Route: CREAM;TOPICAL
Application: A076591 | Product #001
Applicant: CHARTWELL MOLECULAR HOLDINGS LLC
Approved: Apr 18, 2007 | RLD: No | RS: No | Type: DISCN